FAERS Safety Report 17429098 (Version 1)
Quarter: 2020Q1

REPORT INFORMATION
  Report Type: Spontaneous
  Country: US (occurrence: US)
  Receive Date: 20200215
  Receipt Date: 20200215
  Transmission Date: 20200409
  Serious: Yes (Disabling, Congenital Anomaly, Other)
  Sender: FDA-Public Use
  Company Number: None

PATIENT
  Age: 57 Year
  Sex: Male
  Weight: 76.5 kg

DRUGS (13)
  1. PEPCID [Concomitant]
     Active Substance: FAMOTIDINE
  2. PAXIL [Concomitant]
     Active Substance: PAROXETINE HYDROCHLORIDE
  3. LIPITOR [Concomitant]
     Active Substance: ATORVASTATIN CALCIUM
  4. VIT D [Concomitant]
     Active Substance: VITAMIN D NOS
  5. COQ10 [Concomitant]
     Active Substance: UBIDECARENONE
  6. CLARITIN [Concomitant]
     Active Substance: LORATADINE
  7. CALCIUM [Concomitant]
     Active Substance: CALCIUM
  8. FIORICET WITH CODEINE [Concomitant]
     Active Substance: ACETAMINOPHEN\BUTALBITAL\CAFFEINE\CODEINE PHOSPHATE
  9. GLUCOSAMINE [Concomitant]
     Active Substance: GLUCOSAMINE
  10. AIMOVIG [Suspect]
     Active Substance: ERENUMAB-AOOE
     Indication: MIGRAINE PROPHYLAXIS
     Route: 058
     Dates: start: 20181101, end: 20190726
  11. FISH OIL [Concomitant]
     Active Substance: FISH OIL
  12. THERALIX XR [Concomitant]
  13. MULTIVITAMIN [Concomitant]
     Active Substance: VITAMINS

REACTIONS (1)
  - Palpitations [None]

NARRATIVE: CASE EVENT DATE: 20190501
